FAERS Safety Report 8049949-1 (Version None)
Quarter: 2011Q4

REPORT INFORMATION
  Report Type: 
  Country: None (occurrence: None)
  Receive Date: 20111212
  Receipt Date: 20110921
  Transmission Date: 20120403
  Serious: Yes (Hospitalization)
  Sender: FDA-Public Use
  Company Number: PHEH2011US04174

PATIENT
  Age: 28 Year
  Sex: Female

DRUGS (1)
  1. EXTAVIA [Suspect]
     Indication: MULTIPLE SCLEROSIS
     Dosage: 0.25 MG, QOD, SUBCUTANEOUS
     Route: 058
     Dates: start: 20110801

REACTIONS (5)
  - MUSCLE SPASMS [None]
  - MUSCLE SPASTICITY [None]
  - MOVEMENT DISORDER [None]
  - MYALGIA [None]
  - MULTIPLE SCLEROSIS RELAPSE [None]
